FAERS Safety Report 15956674 (Version 1)
Quarter: 2019Q1

REPORT INFORMATION
  Report Type: Spontaneous
  Country: GB (occurrence: GB)
  Receive Date: 20190213
  Receipt Date: 20190213
  Transmission Date: 20190417
  Serious: Yes (Other)
  Sender: FDA-Public Use
  Company Number: GB-MYLANLABS-2019M1011974

PATIENT
  Age: 35 Year
  Sex: Male

DRUGS (2)
  1. TACROLIMUS. [Suspect]
     Active Substance: TACROLIMUS
     Indication: TRANSPLANT
  2. TACROLIMUS. [Suspect]
     Active Substance: TACROLIMUS
     Indication: IMMUNOSUPPRESSANT DRUG THERAPY
     Dosage: UNK

REACTIONS (5)
  - Rash [Recovered/Resolved]
  - Dermatitis [Recovered/Resolved]
  - Graft versus host disease [Unknown]
  - Portal tract inflammation [Recovered/Resolved]
  - Product use in unapproved indication [Unknown]
